FAERS Safety Report 9184103 (Version 1)
Quarter: 2012Q4

REPORT INFORMATION
  Report Type: Report from Study
  Country: CA (occurrence: CA)
  Receive Date: 20121101
  Receipt Date: 20121101
  Transmission Date: 20130627
  Serious: Yes (Hospitalization)
  Sender: FDA-Public Use
  Company Number: CA-JNJFOC-20121012648

PATIENT
  Age: 57 None
  Sex: Male
  Weight: 74 kg

DRUGS (1)
  1. REMICADE [Suspect]
     Indication: PRODUCT USED FOR UNKNOWN INDICATION
     Route: 042
     Dates: start: 20080514, end: 20120917

REACTIONS (2)
  - Lower limb fracture [Unknown]
  - Gait disturbance [Unknown]
